FAERS Safety Report 15295229 (Version 1)
Quarter: 2018Q3

REPORT INFORMATION
  Report Type: Spontaneous
  Country: US (occurrence: US)
  Receive Date: 20180820
  Receipt Date: 20180820
  Transmission Date: 20181010
  Serious: No
  Sender: FDA-Public Use
  Company Number: US-PFIZER INC-2018332086

PATIENT
  Sex: Female

DRUGS (3)
  1. GABAPENTIN. [Suspect]
     Active Substance: GABAPENTIN
     Dosage: 400 MG, DAILY (100 MG IN THE MORNING, 100 MG IN THE AFTERNOON, AND 200 MG AT NIGHT)
     Dates: start: 2018
  2. GABAPENTIN. [Suspect]
     Active Substance: GABAPENTIN
     Indication: ANXIETY
     Dosage: 100 MG, THRICE DAILY
     Dates: start: 2018, end: 2018
  3. GABAPENTIN. [Suspect]
     Active Substance: GABAPENTIN
     Indication: SLEEP DISORDER
     Dosage: 200 MG, THRICE DAILY
     Dates: start: 2018, end: 2018

REACTIONS (5)
  - Drug ineffective for unapproved indication [Unknown]
  - Coordination abnormal [Unknown]
  - Dizziness [Unknown]
  - Intentional product use issue [Unknown]
  - Clumsiness [Unknown]

NARRATIVE: CASE EVENT DATE: 2018
